FAERS Safety Report 20879027 (Version 2)
Quarter: 2022Q2

REPORT INFORMATION
  Report Type: Spontaneous
  Country: HR (occurrence: HR)
  Receive Date: 20220526
  Receipt Date: 20220602
  Transmission Date: 20220721
  Serious: Yes (Hospitalization, Other)
  Sender: FDA-Public Use
  Company Number: HR-009507513-2205HRV005916

PATIENT
  Age: 65 Year
  Sex: Male

DRUGS (1)
  1. KEYTRUDA [Suspect]
     Active Substance: PEMBROLIZUMAB
     Indication: Lung squamous cell carcinoma metastatic
     Dosage: UNK
     Dates: start: 201905

REACTIONS (8)
  - Respiratory failure [Unknown]
  - Pneumonia [Unknown]
  - Pneumonitis [Unknown]
  - Gamma-glutamyltransferase increased [Unknown]
  - Forearm fracture [Unknown]
  - Rib fracture [Unknown]
  - Secondary adrenocortical insufficiency [Unknown]
  - Product use issue [Unknown]

NARRATIVE: CASE EVENT DATE: 20210101
